FAERS Safety Report 14131152 (Version 3)
Quarter: 2018Q1

REPORT INFORMATION
  Report Type: Report from Study
  Country: US (occurrence: US)
  Receive Date: 20171026
  Receipt Date: 20180125
  Transmission Date: 20180508
  Serious: No
  Sender: FDA-Public Use
  Company Number: US-AMGEN-USASL2017116349

PATIENT
  Age: 66 Year
  Sex: Female

DRUGS (1)
  1. REPATHA [Suspect]
     Active Substance: EVOLOCUMAB
     Indication: PRODUCT USED FOR UNKNOWN INDICATION
     Dosage: 140 MG, Q2WK
     Route: 058
     Dates: start: 201608, end: 2017

REACTIONS (6)
  - Pain in extremity [Recovered/Resolved]
  - Contusion [Recovering/Resolving]
  - Limb discomfort [Recovered/Resolved]
  - Urinary tract infection [Recovered/Resolved]
  - Breast tenderness [Recovering/Resolving]
  - Back pain [Recovered/Resolved]
